FAERS Safety Report 9523318 (Version 2)
Quarter: 2013Q4

REPORT INFORMATION
  Report Type: Spontaneous
  Country: AT (occurrence: AT)
  Receive Date: 20130913
  Receipt Date: 20131205
  Transmission Date: 20140711
  Serious: Yes (Other)
  Sender: FDA-Public Use
  Company Number: AT-ROXANE LABORATORIES, INC.-2013-RO-01517RO

PATIENT
  Sex: 0

DRUGS (1)
  1. DEXAMETHASONE [Suspect]
     Indication: GLIOBLASTOMA

REACTIONS (1)
  - Haematotoxicity [Unknown]
